FAERS Safety Report 12673490 (Version 2)
Quarter: 2016Q3

REPORT INFORMATION
  Report Type: Spontaneous
  Country: US (occurrence: US)
  Receive Date: 20160822
  Receipt Date: 20160908
  Transmission Date: 20161109
  Serious: No
  Sender: FDA-Public Use
  Company Number: US-BAYER-2016-161740

PATIENT
  Age: 85 Year
  Sex: Male

DRUGS (1)
  1. GADAVIST [Suspect]
     Active Substance: GADOBUTROL
     Indication: NUCLEAR MAGNETIC RESONANCE IMAGING ABDOMINAL
     Dosage: 8 ML, ONCE
     Dates: start: 20160815, end: 20160815

REACTIONS (2)
  - Off label use [None]
  - Urticaria [Unknown]

NARRATIVE: CASE EVENT DATE: 20160815
